FAERS Safety Report 8101068-1 (Version None)
Quarter: 2012Q1

REPORT INFORMATION
  Report Type: 
  Country: None (occurrence: None)
  Receive Date: 20120129
  Receipt Date: 20110919
  Transmission Date: 20120608
  Serious: No
  Sender: FDA-Public Use
  Company Number: US-ABBOTT-11P-163-0852605-00

PATIENT
  Sex: Male
  Weight: 97.61 kg

DRUGS (18)
  1. RANITIDINE [Concomitant]
     Indication: GASTROOESOPHAGEAL REFLUX DISEASE
     Dosage: 300 MG ONCE DAILY
  2. BUSPIRONE HCL [Concomitant]
     Indication: ANXIETY
  3. ENTOCORT EC [Concomitant]
     Indication: CROHN'S DISEASE
     Dosage: 30MG THREE ONCE DAILY
  4. HUMIRA [Suspect]
     Dates: start: 20110915, end: 20110915
  5. TRAMADOL HCL [Concomitant]
     Indication: PAIN
  6. IRON [Concomitant]
     Indication: IRON DEFICIENCY
     Route: 042
     Dates: start: 20110801
  7. HUMIRA [Suspect]
     Indication: CROHN'S DISEASE
     Dosage: 160 MG LOADING DOSE
     Dates: start: 20110901, end: 20110901
  8. CIPROFLOXACIN [Concomitant]
     Indication: PRODUCT USED FOR UNKNOWN INDICATION
  9. CYTOTEC [Concomitant]
     Indication: GASTRIC DISORDER
  10. CYCLOBENZAPRINE [Concomitant]
     Indication: MUSCLE RELAXANT THERAPY
  11. HUMIRA [Suspect]
  12. AVODART [Concomitant]
     Indication: BENIGN PROSTATIC HYPERPLASIA
  13. LISINOPRIL [Concomitant]
     Indication: HYPERTENSION
     Dosage: 20MG ONCE DAILY,
  14. MULTI-VITAMINS [Concomitant]
     Indication: VITAMIN SUPPLEMENTATION
  15. PENTASA [Concomitant]
     Indication: CROHN'S DISEASE
     Dosage: 8 DAILY
  16. FLAGYL [Concomitant]
     Indication: CROHN'S DISEASE
  17. NEXIUM [Concomitant]
     Indication: GASTROOESOPHAGEAL REFLUX DISEASE
  18. ALLEGRA [Concomitant]
     Indication: HYPERSENSITIVITY

REACTIONS (1)
  - SINUS HEADACHE [None]
